FAERS Safety Report 13005860 (Version 1)
Quarter: 2016Q4

REPORT INFORMATION
  Report Type: Spontaneous
  Country: BR (occurrence: BR)
  Receive Date: 20161207
  Receipt Date: 20161207
  Transmission Date: 20170207
  Serious: Yes (Other)
  Sender: FDA-Public Use
  Company Number: BR-PFIZER INC-2016560352

PATIENT
  Age: 74 Year
  Sex: Female
  Weight: 55 kg

DRUGS (7)
  1. PREDSIM [Concomitant]
     Active Substance: PREDNISOLONE
     Indication: EMPHYSEMA
     Dosage: 1 DF, 2X/DAY
     Route: 048
     Dates: start: 20161129, end: 20161205
  2. FORASEQ [Concomitant]
     Active Substance: BUDESONIDE\FORMOTEROL FUMARATE
     Indication: EMPHYSEMA
     Dosage: 1 DF, 2X/DAY
     Route: 055
     Dates: start: 2013
  3. OSTEOBAN [Concomitant]
     Indication: EMPHYSEMA
     Dosage: 1 DF, MONTHLY
     Route: 048
     Dates: start: 201602
  4. TAMIRAM [Concomitant]
     Active Substance: LEVOFLOXACIN
     Indication: EMPHYSEMA
     Dosage: 1 DF, DAILY
     Route: 048
     Dates: start: 20161129, end: 20161205
  5. DOMPERIDONE [Concomitant]
     Active Substance: DOMPERIDONE
     Indication: GASTROOESOPHAGEAL REFLUX DISEASE
     Dosage: 1 DF, DAILY
     Route: 048
     Dates: start: 201605
  6. SEEBRI [Concomitant]
     Active Substance: GLYCOPYRRONIUM
     Indication: EMPHYSEMA
     Dosage: 1 DF, DAILY
     Route: 055
     Dates: start: 201609
  7. XALATAN [Suspect]
     Active Substance: LATANOPROST
     Indication: GLAUCOMA
     Dosage: 1 DROP IN BOTH EYES MORNING AND NIGHT
     Route: 047
     Dates: start: 2009

REACTIONS (6)
  - Uterine disorder [Unknown]
  - Cataract [Unknown]
  - Emphysema [Not Recovered/Not Resolved]
  - Maculopathy [Unknown]
  - Product use issue [Unknown]
  - Expired product administered [Unknown]

NARRATIVE: CASE EVENT DATE: 2012
